FAERS Safety Report 8971254 (Version 1)
Quarter: 2012Q4

REPORT INFORMATION
  Report Type: 
  Country: IT (occurrence: IT)
  Receive Date: 20121217
  Receipt Date: 20121217
  Transmission Date: 20130627
  Serious: Yes (Hospitalization)
  Sender: FDA-Public Use
  Company Number: IT-GLAXOSMITHKLINE-B0852257A

PATIENT
  Age: 71 Year
  Sex: Female

DRUGS (7)
  1. REVOLADE [Suspect]
     Indication: AUTOIMMUNE THROMBOCYTOPENIA
     Dosage: 75MG per day
     Route: 048
     Dates: start: 20120515, end: 20120919
  2. LANSOPRAZOLE [Concomitant]
     Dosage: 30MG per day
  3. CARDICOR [Concomitant]
     Dosage: 1.25MG per day
  4. LASITONE [Concomitant]
  5. TAPAZOLE [Concomitant]
  6. DELTACORTENE [Concomitant]
     Dosage: 50MG per day
  7. APROVEL [Concomitant]
     Dosage: 300MG per day

REACTIONS (2)
  - Pulmonary embolism [Recovered/Resolved with Sequelae]
  - Pulmonary infarction [Recovered/Resolved with Sequelae]
